FAERS Safety Report 8075959-4 (Version None)
Quarter: 2012Q1

REPORT INFORMATION
  Report Type: 
  Country: None (occurrence: None)
  Receive Date: 20120127
  Receipt Date: 20101203
  Transmission Date: 20120608
  Serious: No
  Sender: FDA-Public Use
  Company Number: US-GLAXOSMITHKLINE-A0898235A

PATIENT
  Age: 30 Year
  Sex: Female

DRUGS (2)
  1. BIRTH CONTROL [Concomitant]
  2. WELLBUTRIN XL [Suspect]
     Indication: PRODUCT USED FOR UNKNOWN INDICATION
     Dosage: 300MG PER DAY
     Route: 065
     Dates: start: 20100101

REACTIONS (3)
  - DIZZINESS [None]
  - TREMOR [None]
  - THIRST [None]
